FAERS Safety Report 5917694-1 (Version None)
Quarter: 2008Q4

REPORT INFORMATION
  Report Type: 
  Country: None (occurrence: None)
  Receive Date: 20081014
  Receipt Date: 20081006
  Transmission Date: 20090506
  Serious: Yes (Hospitalization)
  Sender: FDA-Public Use
  Company Number: FR-ASTRAZENECA-2008CG01457

PATIENT
  Age: 692 Month
  Sex: Male
  Weight: 85 kg

DRUGS (14)
  1. ZESTRIL [Suspect]
     Route: 048
     Dates: end: 20080710
  2. ZESTRIL [Suspect]
     Route: 048
     Dates: start: 20080701, end: 20080731
  3. KETODERM [Suspect]
     Indication: TINEA VERSICOLOUR
     Route: 003
     Dates: start: 20080705, end: 20080705
  4. KETODERM [Suspect]
     Route: 003
     Dates: start: 20080726, end: 20080726
  5. MOPRAL [Concomitant]
     Route: 065
  6. CORTANCYL [Concomitant]
  7. FOSAMAX [Concomitant]
  8. CALCIUM D3 [Concomitant]
  9. SEREVENT [Concomitant]
  10. BECOTIDE [Concomitant]
  11. BECONASE [Concomitant]
  12. TAHOR [Concomitant]
  13. PREVISCAN [Concomitant]
     Dates: end: 20080701
  14. DYSALFA [Concomitant]
     Indication: DYSURIA

REACTIONS (4)
  - DIARRHOEA [None]
  - HYPOVOLAEMIC SHOCK [None]
  - HYPOXIA [None]
  - VOMITING [None]
